FAERS Safety Report 19280673 (Version 2)
Quarter: 2021Q2

REPORT INFORMATION
  Report Type: Spontaneous
  Country: US (occurrence: US)
  Receive Date: 20210521
  Receipt Date: 20210607
  Transmission Date: 20210717
  Serious: No
  Sender: FDA-Public Use
  Company Number: US-ETHYPHARM-2021000773

PATIENT
  Sex: Female

DRUGS (1)
  1. BUPRENORPHINE. [Suspect]
     Active Substance: BUPRENORPHINE
     Dosage: NDC # WAS 50383?0930?93
     Route: 060

REACTIONS (2)
  - Withdrawal syndrome [Unknown]
  - Product quality issue [Unknown]
